FAERS Safety Report 8522730-2 (Version None)
Quarter: 2012Q3

REPORT INFORMATION
  Report Type: 
  Country: None (occurrence: None)
  Receive Date: 20120719
  Receipt Date: 20120712
  Transmission Date: 20120928
  Serious: Yes (Hospitalization)
  Sender: FDA-Public Use
  Company Number: IT-GLAXOSMITHKLINE-B0815711A

PATIENT
  Sex: Female

DRUGS (2)
  1. PAZOPANIB [Suspect]
     Indication: OVARIAN CANCER
     Route: 065
     Dates: start: 20120627
  2. PACLITAXEL [Suspect]
     Indication: OVARIAN CANCER
     Route: 065
     Dates: start: 20120627

REACTIONS (2)
  - INTESTINAL PERFORATION [None]
  - ILEUS [None]
